FAERS Safety Report 11168314 (Version 2)
Quarter: 2015Q2

REPORT INFORMATION
  Report Type: Spontaneous
  Country: US (occurrence: US)
  Receive Date: 20150605
  Receipt Date: 20150626
  Transmission Date: 20150821
  Serious: Yes (Hospitalization, Other)
  Sender: FDA-Public Use
  Company Number: US-CELGENEUS-USA-2015055531

PATIENT
  Sex: Female
  Weight: 45.4 kg

DRUGS (1)
  1. REVLIMID [Suspect]
     Active Substance: LENALIDOMIDE
     Indication: PLASMA CELL MYELOMA
     Dosage: 25 MILLIGRAM
     Route: 048
     Dates: start: 20150112

REACTIONS (3)
  - Nausea [Not Recovered/Not Resolved]
  - Plasma cell myeloma [Unknown]
  - Abdominal pain upper [Not Recovered/Not Resolved]
